FAERS Safety Report 9869326 (Version 3)
Quarter: 2014Q2

REPORT INFORMATION
  Report Type: Report from Study
  Country: DE (occurrence: DE)
  Receive Date: 20140205
  Receipt Date: 20140523
  Transmission Date: 20141212
  Serious: Yes (Hospitalization)
  Sender: FDA-Public Use
  Company Number: DE-ROCHE-1339862

PATIENT
  Age: 69 Year
  Sex: Female
  Weight: 58.6 kg

DRUGS (11)
  1. TRASTUZUMAB [Suspect]
     Indication: HER-2 POSITIVE BREAST CANCER
     Route: 042
     Dates: start: 20131001
  2. TRASTUZUMAB [Suspect]
     Dosage: MAINTAINENCE DOSE; MOST RECENT DOSE ON 12/NOV/2013
     Route: 042
  3. PACLITAXEL [Suspect]
     Indication: HER-2 POSITIVE BREAST CANCER
     Dosage: MOST RECENT DOSE ON 12/NOV/2013
     Route: 042
     Dates: start: 20131001
  4. AMLODIPIN [Concomitant]
     Route: 065
     Dates: start: 201311
  5. TORASEMID [Concomitant]
     Route: 065
     Dates: start: 201311
  6. PHENPROCOUMON [Concomitant]
     Route: 065
     Dates: start: 201312
  7. LOSARTAN KALIUM [Concomitant]
     Route: 065
     Dates: start: 201312, end: 2014
  8. PREDNISOLON [Concomitant]
     Route: 065
     Dates: start: 201312
  9. KALIUM VERLA [Concomitant]
     Route: 065
     Dates: start: 201312, end: 201401
  10. PLACEBO [Suspect]
     Indication: HER-2 POSITIVE BREAST CANCER
     Dosage: LOADING DOSE
     Route: 042
     Dates: start: 20131001
  11. PLACEBO [Suspect]
     Dosage: MAINTAINENCE DOSE; MOST RECENT DOSE ON 12/NOV/2013
     Route: 042

REACTIONS (1)
  - Atrioventricular block [Recovered/Resolved]
